FAERS Safety Report 7411703-9 (Version None)
Quarter: 2011Q2

REPORT INFORMATION
  Report Type: 
  Country: None (occurrence: None)
  Receive Date: 20110413
  Receipt Date: 20101115
  Transmission Date: 20111010
  Serious: No
  Sender: FDA-Public Use
  Company Number: US-BRISTOL-MYERS SQUIBB COMPANY-15386535

PATIENT
  Age: 52 Year
  Sex: Female

DRUGS (1)
  1. ERBITUX [Suspect]
     Indication: RECTAL CANCER
     Dosage: 1ST INFUSION OF ERBITUX
     Dates: start: 20101101

REACTIONS (1)
  - ABDOMINAL PAIN [None]
